FAERS Safety Report 15609561 (Version 1)
Quarter: 2018Q4

REPORT INFORMATION
  Report Type: Spontaneous
  Country: TW (occurrence: TW)
  Receive Date: 20181112
  Receipt Date: 20181112
  Transmission Date: 20190205
  Serious: Yes (Hospitalization, Other)
  Sender: FDA-Public Use
  Company Number: TW-MYLANLABS-2018M1085838

PATIENT
  Age: 60 Year
  Sex: Male

DRUGS (5)
  1. FENTANYL. [Suspect]
     Active Substance: FENTANYL
     Indication: PAIN
     Dosage: SKIN TAPE PER 3 DAYS
     Route: 061
  2. IFOSFAMIDE. [Suspect]
     Active Substance: IFOSFAMIDE
     Indication: PLEOMORPHIC LIPOSARCOMA
     Route: 065
     Dates: start: 201404
  3. DOXORUBICIN [Suspect]
     Active Substance: DOXORUBICIN
     Indication: PLEOMORPHIC LIPOSARCOMA
     Route: 065
     Dates: start: 201404
  4. DACARBAZINE. [Suspect]
     Active Substance: DACARBAZINE
     Indication: PLEOMORPHIC LIPOSARCOMA
     Dosage: UNK
     Route: 065
     Dates: start: 201404
  5. MESNA. [Suspect]
     Active Substance: MESNA
     Indication: PLEOMORPHIC LIPOSARCOMA
     Route: 065
     Dates: start: 201404

REACTIONS (2)
  - Extraskeletal osteosarcoma metastatic [Unknown]
  - Drug ineffective [Unknown]
